FAERS Safety Report 21115215 (Version 4)
Quarter: 2023Q1

REPORT INFORMATION
  Report Type: Spontaneous
  Country: US (occurrence: US)
  Receive Date: 20220721
  Receipt Date: 20230208
  Transmission Date: 20230417
  Serious: No
  Sender: FDA-Public Use
  Company Number: US-BIOGEN-2022BI01141120

PATIENT
  Age: 61 Year
  Sex: Female

DRUGS (2)
  1. TECFIDERA [Suspect]
     Active Substance: DIMETHYL FUMARATE
     Indication: Product used for unknown indication
     Route: 050
     Dates: start: 2022
  2. TECFIDERA [Suspect]
     Active Substance: DIMETHYL FUMARATE
     Route: 050

REACTIONS (5)
  - Hand fracture [Unknown]
  - COVID-19 [Unknown]
  - Wrist fracture [Unknown]
  - Fall [Recovered/Resolved]
  - Flushing [Unknown]

NARRATIVE: CASE EVENT DATE: 20220705
